FAERS Safety Report 5727900-4 (Version None)
Quarter: 2008Q2

REPORT INFORMATION
  Report Type: 
  Country: None (occurrence: None)
  Receive Date: 20080505
  Receipt Date: 20080423
  Transmission Date: 20081010
  Serious: Yes (Other)
  Sender: FDA-Public Use
  Company Number: US-PFIZER INC-2008008429

PATIENT
  Sex: Female
  Weight: 50.8 kg

DRUGS (3)
  1. CHANTIX [Suspect]
     Indication: SMOKING CESSATION THERAPY
     Dates: start: 20071231, end: 20080110
  2. PROZAC [Concomitant]
     Indication: NERVOUSNESS
     Dosage: DAILY DOSE:20MG
  3. KLONOPIN [Concomitant]
     Indication: INSOMNIA
     Dosage: DAILY DOSE:.5MG

REACTIONS (4)
  - CONVULSION [None]
  - FEELING ABNORMAL [None]
  - PAROSMIA [None]
  - PRESYNCOPE [None]
